FAERS Safety Report 9110122 (Version 1)
Quarter: 2013Q1

REPORT INFORMATION
  Report Type: Spontaneous
  Country: US (occurrence: US)
  Receive Date: 20130222
  Receipt Date: 20130222
  Transmission Date: 20140127
  Serious: Yes (Hospitalization)
  Sender: FDA-Public Use
  Company Number: US-JNJFOC-20130208665

PATIENT
  Age: 78 Year
  Sex: Male

DRUGS (10)
  1. XARELTO [Suspect]
     Indication: CEREBROVASCULAR ACCIDENT PROPHYLAXIS
     Route: 048
  2. XARELTO [Suspect]
     Indication: CEREBROVASCULAR ACCIDENT PROPHYLAXIS
     Route: 048
     Dates: start: 20121221
  3. XARELTO [Suspect]
     Indication: ATRIAL FIBRILLATION
     Route: 048
  4. XARELTO [Suspect]
     Indication: ATRIAL FIBRILLATION
     Route: 048
     Dates: start: 20121221
  5. ASPIRIN [Suspect]
     Indication: ANGIOPATHY
     Route: 065
  6. METOPROLOL [Concomitant]
     Route: 065
  7. DIOVAN [Concomitant]
     Route: 065
  8. PREVACID [Concomitant]
     Route: 065
  9. LIPITOR [Concomitant]
     Route: 065
  10. FISH OIL [Concomitant]
     Route: 065

REACTIONS (6)
  - Gastrointestinal haemorrhage [Unknown]
  - Occult blood positive [Unknown]
  - Haemoglobin decreased [Unknown]
  - Oesophagitis [Unknown]
  - Syncope [Unknown]
  - Transient ischaemic attack [Unknown]
